FAERS Safety Report 9174312 (Version 1)
Quarter: 2013Q1

REPORT INFORMATION
  Report Type: Spontaneous
  Country: FR (occurrence: None)
  Receive Date: 20130318
  Receipt Date: 20130318
  Transmission Date: 20140127
  Serious: Yes (Disabling)
  Sender: FDA-Public Use
  Company Number: 1626018

PATIENT
  Age: 69 Year
  Sex: Male

DRUGS (6)
  1. FLUDARABINE PHOSPHATE [Suspect]
     Indication: LYMPHADENITIS
  2. FLUDARABINE PHOSPHATE [Suspect]
     Indication: LYMPHADENITIS
  3. FLUDARABINE PHOSPHATE [Suspect]
     Indication: LYMPHADENITIS
  4. CYCLOPHOSPHAMIDE [Suspect]
     Indication: LYMPHADENITIS
  5. CYCLOPHOSPHAMIDE [Suspect]
     Indication: LYMPHADENITIS
  6. RITUXIMAB [Suspect]

REACTIONS (5)
  - Meningitis cryptococcal [None]
  - Confusional state [None]
  - Weight decreased [None]
  - Somnolence [None]
  - Ataxia [None]
